FAERS Safety Report 4470508-1 (Version None)
Quarter: 2004Q4

REPORT INFORMATION
  Report Type: 
  Country: None (occurrence: None)
  Receive Date: 20041005
  Receipt Date: 20040922
  Transmission Date: 20050328
  Serious: Yes (Hospitalization, Other)
  Sender: FDA-Public Use
  Company Number: 209249

PATIENT
  Age: 5 Month
  Sex: Male

DRUGS (1)
  1. NUTROPIN AQ [Suspect]
     Indication: HYPOPITUITARISM
     Dosage: 0.3 MG/KG
     Dates: start: 20040401

REACTIONS (2)
  - HYDROCEPHALUS [None]
  - LISTLESS [None]
